FAERS Safety Report 9075066 (Version 1)
Quarter: 2013Q1

REPORT INFORMATION
  Report Type: Report from Study
  Country: US (occurrence: US)
  Receive Date: 20130128
  Receipt Date: 20130128
  Transmission Date: 20140127
  Serious: No
  Sender: FDA-Public Use
  Company Number: US-ABBOTT-12P-163-0899292-00

PATIENT
  Sex: Male

DRUGS (4)
  1. HUMIRA 40 MG/ 0.8 ML PRE-FILLED SYRINGE [Suspect]
     Indication: PRODUCT USED FOR UNKNOWN INDICATION
  2. PEGASYS [Concomitant]
     Indication: PRODUCT USED FOR UNKNOWN INDICATION
  3. RIBASPHERE [Concomitant]
     Indication: PRODUCT USED FOR UNKNOWN INDICATION
  4. VICTRELIS [Concomitant]
     Indication: PRODUCT USED FOR UNKNOWN INDICATION

REACTIONS (1)
  - Accidental exposure to product [Unknown]
